FAERS Safety Report 7888587-8 (Version None)
Quarter: 2011Q4

REPORT INFORMATION
  Report Type: 
  Country: None (occurrence: None)
  Receive Date: 20111103
  Receipt Date: 20111031
  Transmission Date: 20120403
  Serious: No
  Sender: FDA-Public Use
  Company Number: US-PFIZER INC-2011265435

PATIENT
  Sex: Male

DRUGS (4)
  1. EFFEXOR [Suspect]
     Dosage: UNK
     Dates: start: 19910101
  2. LIPITOR [Suspect]
     Dosage: UNK
     Dates: start: 19910101
  3. LYRICA [Suspect]
     Dosage: UNK
     Dates: start: 19900101
  4. DILANTIN [Suspect]
     Dosage: UNK
     Dates: start: 20000101

REACTIONS (3)
  - DIARRHOEA [None]
  - VOMITING [None]
  - NAUSEA [None]
